FAERS Safety Report 21212246 (Version 2)
Quarter: 2022Q3

REPORT INFORMATION
  Report Type: Spontaneous
  Country: US (occurrence: US)
  Receive Date: 20220815
  Receipt Date: 20220921
  Transmission Date: 20221027
  Serious: No
  Sender: FDA-Public Use
  Company Number: US-PFIZER INC-202201053970

PATIENT
  Age: 76 Year
  Sex: Female
  Weight: 98 kg

DRUGS (13)
  1. PAXLOVID [Suspect]
     Active Substance: NIRMATRELVIR\RITONAVIR
     Indication: COVID-19 treatment
     Dosage: UNK
     Route: 048
     Dates: start: 20220809, end: 20220811
  2. PAXLOVID [Suspect]
     Active Substance: NIRMATRELVIR\RITONAVIR
     Dosage: 3 DF, 2X/DAY ([PF-07321332 300 MG]/[RITONAVIR 100 MG]; 2X/DAY)
     Route: 048
     Dates: start: 20220809, end: 20220811
  3. PRAVASTATIN [Concomitant]
     Active Substance: PRAVASTATIN
     Dosage: UNK
     Route: 048
  4. DORZOLAMIDE [Concomitant]
     Active Substance: DORZOLAMIDE
     Dosage: UNK
  5. LATANOPROST [Concomitant]
     Active Substance: LATANOPROST
     Dosage: UNK
  6. PANTOPRAZOLE [Concomitant]
     Active Substance: PANTOPRAZOLE
     Dosage: UNK
  7. METOCLOPRAMIDE [Concomitant]
     Active Substance: METOCLOPRAMIDE
     Dosage: UNK
  8. TOPAMAX [Concomitant]
     Active Substance: TOPIRAMATE
     Dosage: UNK
  9. TIZANIDINE [Concomitant]
     Active Substance: TIZANIDINE
     Dosage: UNK
  10. LOSARTAN [Concomitant]
     Active Substance: LOSARTAN
     Dosage: UNK
  11. ASPIRIN [Concomitant]
     Active Substance: ASPIRIN
     Dosage: UNK
  12. VENLAFAXINE [Concomitant]
     Active Substance: VENLAFAXINE HYDROCHLORIDE
     Dosage: UNK
  13. VITAMIN D3 [Concomitant]
     Active Substance: CHOLECALCIFEROL
     Dosage: UNK

REACTIONS (4)
  - Pruritus [Recovered/Resolved]
  - Abdominal discomfort [Recovered/Resolved]
  - Diarrhoea [Recovered/Resolved]
  - Ageusia [Recovered/Resolved]

NARRATIVE: CASE EVENT DATE: 20220811
